FAERS Safety Report 4705885-7 (Version None)
Quarter: 2005Q2

REPORT INFORMATION
  Report Type: 
  Country: None (occurrence: None)
  Receive Date: 20050629
  Receipt Date: 20050420
  Transmission Date: 20051028
  Serious: Yes (Hospitalization)
  Sender: FDA-Public Use
  Company Number: 05P-163-0297975-00

PATIENT
  Age: 64 Year
  Sex: Female

DRUGS (10)
  1. HUMIRA [Suspect]
     Indication: RHEUMATOID ARTHRITIS
     Dosage: 40 MG, 1 IN 2 WK, SUBCUTANEOUS;  40 MG, 1 IN 1 WK, SUBCUTANEOUS
     Route: 058
     Dates: start: 20031101, end: 20040101
  2. HUMIRA [Suspect]
     Indication: RHEUMATOID ARTHRITIS
     Dosage: 40 MG, 1 IN 2 WK, SUBCUTANEOUS;  40 MG, 1 IN 1 WK, SUBCUTANEOUS
     Route: 058
     Dates: start: 20040201, end: 20050325
  3. PREDNISONE TAB [Concomitant]
  4. ARTHROTEC [Concomitant]
  5. VENLAFAXINE HCL [Concomitant]
  6. FENTANYL [Concomitant]
  7. CALCIUM GLUCONATE [Concomitant]
  8. TOCOPHEROL CONCENTRATE CAP [Concomitant]
  9. ASCORBIC ACID [Concomitant]
  10. FISH OIL [Concomitant]

REACTIONS (1)
  - BREAST CANCER [None]
